FAERS Safety Report 21489811 (Version 1)
Quarter: 2022Q4

REPORT INFORMATION
  Report Type: Spontaneous
  Country: US (occurrence: US)
  Receive Date: 20221021
  Receipt Date: 20221021
  Transmission Date: 20230113
  Serious: No
  Sender: FDA-Public Use
  Company Number: US-CELLTRION INC.-2022US013780

PATIENT

DRUGS (9)
  1. INFLIXIMAB [Suspect]
     Active Substance: INFLIXIMAB
     Indication: Product used for unknown indication
  2. METHOTREXATE [Suspect]
     Active Substance: METHOTREXATE
     Dosage: UNK
  3. PAMIDRONATE [Suspect]
     Active Substance: PAMIDRONATE DISODIUM
  4. ETANERCEPT [Suspect]
     Active Substance: ETANERCEPT
  5. CANAKINUMAB [Suspect]
     Active Substance: CANAKINUMAB
  6. ADALIMUMAB [Suspect]
     Active Substance: ADALIMUMAB
  7. TOCILIZUMAB [Suspect]
     Active Substance: TOCILIZUMAB
  8. GOLIMUMAB [Suspect]
     Active Substance: GOLIMUMAB
     Indication: Psoriasis
  9. TOFACITINIB [Suspect]
     Active Substance: TOFACITINIB
     Indication: Chronic recurrent multifocal osteomyelitis
     Dosage: UNK
     Dates: start: 202107

REACTIONS (5)
  - Pathological fracture [Unknown]
  - Bone lesion [Unknown]
  - Chronic recurrent multifocal osteomyelitis [Unknown]
  - Psoriasis [Unknown]
  - Condition aggravated [Unknown]
